FAERS Safety Report 22177949 (Version 4)
Quarter: 2024Q1

REPORT INFORMATION
  Report Type: Spontaneous
  Country: FR (occurrence: FR)
  Receive Date: 20230405
  Receipt Date: 20240119
  Transmission Date: 20240410
  Serious: Yes (Death, Other)
  Sender: FDA-Public Use
  Company Number: None

PATIENT
  Age: 34 Year
  Sex: Female
  Weight: 47 kg

DRUGS (3)
  1. PIPERACILLIN SODIUM\TAZOBACTAM SODIUM [Suspect]
     Active Substance: PIPERACILLIN SODIUM\TAZOBACTAM SODIUM
     Indication: Gastric infection
     Dosage: 12 G
     Route: 042
     Dates: start: 20230204, end: 20230309
  2. PANTOPRAZOLE [Suspect]
     Active Substance: PANTOPRAZOLE
     Dosage: 40 G, 1X/DAY
     Route: 042
     Dates: start: 20230202, end: 20230309
  3. LANREOTIDE ACETATE [Suspect]
     Active Substance: LANREOTIDE ACETATE
     Dosage: 1 DF, MONTHLY (FREQ:4 WK)
     Route: 058
     Dates: start: 20230221, end: 20230309

REACTIONS (2)
  - Drug reaction with eosinophilia and systemic symptoms [Fatal]
  - Cardio-respiratory arrest [Fatal]

NARRATIVE: CASE EVENT DATE: 20230306
